FAERS Safety Report 4727300-X (Version None)
Quarter: 2005Q3

REPORT INFORMATION
  Report Type: 
  Country: None (occurrence: None)
  Receive Date: 20050727
  Receipt Date: 20050727
  Transmission Date: 20060218
  Serious: Yes (Other)
  Sender: FDA-Public Use
  Company Number: None

PATIENT
  Age: 61 Year
  Sex: Male
  Weight: 84.8 kg

DRUGS (2)
  1. TETRAFLUOROETHANE [Suspect]
     Indication: LOCAL ANAESTHESIA
     Dosage: TOPICAL
     Route: 061
  2. FLUORO-ETHYL TOP SPRAY [Suspect]

REACTIONS (2)
  - APPLICATION SITE REACTION [None]
  - FROSTBITE [None]
